FAERS Safety Report 4486357-4 (Version None)
Quarter: 2004Q4

REPORT INFORMATION
  Report Type: 
  Country: None (occurrence: None)
  Receive Date: 20041021
  Receipt Date: 20041005
  Transmission Date: 20050328
  Serious: No
  Sender: FDA-Public Use
  Company Number: A01200405085

PATIENT
  Age: 78 Year
  Sex: Male

DRUGS (5)
  1. PLAVIX [Suspect]
     Indication: CEREBROVASCULAR ACCIDENT PROPHYLAXIS
     Dosage: 75 MG OD, ORAL
     Route: 048
     Dates: start: 20031101, end: 20040801
  2. ADALAT [Suspect]
     Indication: HYPERTENSION
     Dosage: 60 MG OD; ORAL
     Route: 048
     Dates: start: 20030101
  3. TENORMIN [Concomitant]
  4. ASPIRIN [Concomitant]
  5. AMARYL [Concomitant]

REACTIONS (1)
  - GINGIVAL INFECTION [None]
